FAERS Safety Report 11964496 (Version 1)
Quarter: 2016Q1

REPORT INFORMATION
  Report Type: Spontaneous
  Country: US (occurrence: None)
  Receive Date: 20160121
  Receipt Date: 20160121
  Transmission Date: 20160526
  Serious: No
  Sender: FDA-Public Use
  Company Number: None

PATIENT
  Age: 67 Year
  Sex: Female
  Weight: 61.24 kg

DRUGS (6)
  1. LIOTHYROXINE [Concomitant]
  2. VITAMIN C [Concomitant]
     Active Substance: ASCORBIC ACID
  3. MULTIVITAMIN [Concomitant]
     Active Substance: VITAMINS
  4. ESTRADIOL. [Concomitant]
     Active Substance: ESTRADIOL
  5. HYDRO CONDONE/ACETAMINOPHEN 5-325 TH ACTIVIS [Suspect]
     Active Substance: ACETAMINOPHEN\HYDROCODONE
     Indication: PROCEDURAL PAIN
     Dosage: 1 TO 2 TABLETS
     Route: 048
     Dates: start: 20160112, end: 20160116
  6. VITAMIN D [Concomitant]
     Active Substance: CHOLECALCIFEROL

REACTIONS (3)
  - Drug effect decreased [None]
  - Discomfort [None]
  - Product formulation issue [None]

NARRATIVE: CASE EVENT DATE: 20160112
